FAERS Safety Report 5757721-8 (Version None)
Quarter: 2008Q2

REPORT INFORMATION
  Report Type: 
  Country: None (occurrence: None)
  Receive Date: 20080529
  Receipt Date: 20080514
  Transmission Date: 20081010
  Serious: Yes (Other)
  Sender: FDA-Public Use
  Company Number: 220002L08JPN

PATIENT
  Age: 24 Year
  Sex: Female

DRUGS (1)
  1. SOMATROPIN (SOMATROPIN) [Suspect]
     Indication: GROWTH HORMONE DEFICIENCY
     Dosage: 0.175 MG/KG, 1 IN 1 WEEKS;  0.1 MG, 1 IN 1 DAYS

REACTIONS (6)
  - CEREBRAL ATROPHY [None]
  - COMPLEX PARTIAL SEIZURES [None]
  - DEAFNESS NEUROSENSORY [None]
  - DIZZINESS [None]
  - EPILEPSY [None]
  - FEELING ABNORMAL [None]
